FAERS Safety Report 10102029 (Version 1)
Quarter: 2014Q2

REPORT INFORMATION
  Report Type: Spontaneous
  Country: CN (occurrence: CN)
  Receive Date: 20140424
  Receipt Date: 20140424
  Transmission Date: 20141212
  Serious: Yes (Other)
  Sender: FDA-Public Use
  Company Number: CN-ROCHE-1388952

PATIENT
  Age: 50 Year
  Sex: Male

DRUGS (5)
  1. ROCEPHIN [Suspect]
     Indication: GASTROENTERITIS
     Route: 041
     Dates: start: 20140414
  2. REPAGLINIDE [Concomitant]
     Indication: DIABETES MELLITUS
     Route: 048
  3. AMLODIPINE BESYLATE [Concomitant]
     Indication: HYPERTENSION
     Route: 048
  4. ADALAT [Concomitant]
     Indication: HYPERTENSION
     Route: 048
  5. BISOPROLOL FUMARATE [Concomitant]
     Indication: HYPERTENSION
     Route: 048

REACTIONS (1)
  - Haemorrhage subcutaneous [Not Recovered/Not Resolved]
